FAERS Safety Report 18555696 (Version 2)
Quarter: 2020Q4

REPORT INFORMATION
  Report Type: Spontaneous
  Country: PT (occurrence: PT)
  Receive Date: 20201127
  Receipt Date: 20201203
  Transmission Date: 20210114
  Serious: Yes (Other)
  Sender: FDA-Public Use
  Company Number: PT-009507513-2011PRT015653

PATIENT
  Age: 63 Year
  Sex: Male

DRUGS (8)
  1. CISPLATIN. [Suspect]
     Active Substance: CISPLATIN
     Indication: TRANSITIONAL CELL CARCINOMA URETHRA
  2. GEMCITABINE. [Suspect]
     Active Substance: GEMCITABINE
     Indication: BLADDER TRANSITIONAL CELL CARCINOMA
     Dosage: UNK
     Dates: start: 201706
  3. BCG LIVE [Suspect]
     Active Substance: BACILLUS CALMETTE-GUERIN SUBSTRAIN TICE LIVE ANTIGEN
     Indication: BLADDER TRANSITIONAL CELL CARCINOMA
     Dosage: UNK
     Route: 043
     Dates: start: 201611
  4. CISPLATIN. [Suspect]
     Active Substance: CISPLATIN
     Indication: BLADDER TRANSITIONAL CELL CARCINOMA
     Dosage: UNK
     Dates: start: 201706
  5. PEMBROLIZUMAB. [Suspect]
     Active Substance: PEMBROLIZUMAB
     Indication: BLADDER TRANSITIONAL CELL CARCINOMA
     Dosage: 200 MILLIGRAM, Q3W (EVERY 3 WEEKS)
     Dates: start: 201805
  6. BCG LIVE [Suspect]
     Active Substance: BACILLUS CALMETTE-GUERIN SUBSTRAIN TICE LIVE ANTIGEN
     Indication: TRANSITIONAL CELL CARCINOMA URETHRA
  7. PEMBROLIZUMAB. [Suspect]
     Active Substance: PEMBROLIZUMAB
     Indication: TRANSITIONAL CELL CARCINOMA URETHRA
  8. GEMCITABINE. [Suspect]
     Active Substance: GEMCITABINE
     Indication: TRANSITIONAL CELL CARCINOMA URETHRA

REACTIONS (5)
  - Malignant neoplasm progression [Unknown]
  - Stoma site dermatitis [Recovered/Resolved]
  - Transitional cell carcinoma recurrent [Unknown]
  - Malignant neoplasm progression [Unknown]
  - Blood glucose increased [Unknown]

NARRATIVE: CASE EVENT DATE: 201705
